FAERS Safety Report 7059624-8 (Version None)
Quarter: 2010Q4

REPORT INFORMATION
  Report Type: 
  Country: None (occurrence: None)
  Receive Date: 20101025
  Receipt Date: 20101019
  Transmission Date: 20110411
  Serious: Yes (Death)
  Sender: FDA-Public Use
  Company Number: IT-ASTRAZENECA-2010SE48537

PATIENT
  Age: 23709 Day
  Sex: Female

DRUGS (5)
  1. OMEPRAZEN [Suspect]
     Route: 048
     Dates: start: 20050401, end: 20100930
  2. TOCILIZUMAB [Suspect]
     Indication: RHEUMATOID ARTHRITIS
     Route: 042
     Dates: start: 20050726, end: 20100720
  3. SODIUM METHOTREXATE [Suspect]
     Indication: RHEUMATOID ARTHRITIS
     Route: 030
     Dates: start: 20050401, end: 20100901
  4. RENORMAX [Concomitant]
  5. ACTONEL [Concomitant]

REACTIONS (1)
  - NEUROENDOCRINE CARCINOMA [None]
